FAERS Safety Report 21391309 (Version 1)
Quarter: 2022Q3

REPORT INFORMATION
  Report Type: Spontaneous
  Country: US (occurrence: US)
  Receive Date: 20220929
  Receipt Date: 20220929
  Transmission Date: 20221027
  Serious: Yes (Other)
  Sender: FDA-Public Use
  Company Number: US-IBSA PHARMA INC.-2021-IBS-00496

PATIENT
  Age: 58 Year
  Weight: 371 kg

DRUGS (3)
  1. FLECTOR [Suspect]
     Active Substance: DICLOFENAC EPOLAMINE
     Indication: Arthritis
     Dosage: UNK, 2X/DAY [1.3%; APPLY ONCE EVERY TWELVE HOURS]
     Dates: start: 2006
  2. FLECTOR [Suspect]
     Active Substance: DICLOFENAC EPOLAMINE
     Indication: Chondromalacia
  3. FLECTOR [Suspect]
     Active Substance: DICLOFENAC EPOLAMINE
     Indication: Arthralgia

REACTIONS (9)
  - Drug dependence [Unknown]
  - Lymphoma [Unknown]
  - Frustration tolerance decreased [Unknown]
  - Irritability [Unknown]
  - Gait disturbance [Unknown]
  - Body mass index increased [Unknown]
  - Product use in unapproved indication [Unknown]
  - Off label use [Unknown]
  - Product dose omission issue [Unknown]

NARRATIVE: CASE EVENT DATE: 20060101
